FAERS Safety Report 4527807-4 (Version None)
Quarter: 2004Q4

REPORT INFORMATION
  Report Type: 
  Country: None (occurrence: None)
  Receive Date: 20041123
  Receipt Date: 20031014
  Transmission Date: 20050328
  Serious: Yes (Hospitalization)
  Sender: FDA-Public Use
  Company Number: ATO-03-0017

PATIENT
  Age: 69 Year
  Sex: Male
  Weight: 82.5547 kg

DRUGS (4)
  1. TRISENOX [Suspect]
     Indication: MYELODYSPLASTIC SYNDROME
     Dosage: 20 MG (0.25 MG/KG, 5X/WK, 2WK ON 2WK OFF), IVI
     Route: 042
     Dates: start: 20021209, end: 20030829
  2. DESFERAL [Concomitant]
  3. MAG. OXIDE [Concomitant]
  4. KEFLEX [Concomitant]

REACTIONS (3)
  - HYPERGLYCAEMIA [None]
  - PYREXIA [None]
  - VISION BLURRED [None]
